FAERS Safety Report 15863757 (Version 1)
Quarter: 2019Q1

REPORT INFORMATION
  Report Type: Spontaneous
  Country: US (occurrence: US)
  Receive Date: 20190124
  Receipt Date: 20190124
  Transmission Date: 20190417
  Serious: No
  Sender: FDA-Public Use
  Company Number: US-ENDO PHARMACEUTICALS INC-2018-042678

PATIENT
  Sex: Male
  Weight: 86.17 kg

DRUGS (2)
  1. FORTESTA [Suspect]
     Active Substance: TESTOSTERONE
     Indication: BLOOD TESTOSTERONE DECREASED
     Dosage: 30 MG (THREE PUMPS), DAILY
     Route: 061
  2. ANDROGEL [Concomitant]
     Active Substance: TESTOSTERONE
     Indication: BLOOD TESTOSTERONE DECREASED

REACTIONS (5)
  - Asthenia [Unknown]
  - Product dose omission [Unknown]
  - Intentional product use issue [Unknown]
  - Product distribution issue [Unknown]
  - Loss of libido [Unknown]
